FAERS Safety Report 21377816 (Version 3)
Quarter: 2022Q4

REPORT INFORMATION
  Report Type: Report from Study
  Country: US (occurrence: US)
  Receive Date: 20220926
  Receipt Date: 20221017
  Transmission Date: 20230112
  Serious: Yes (Other)
  Sender: FDA-Public Use
  Company Number: US-BIOGEN-2022BI01130223

PATIENT
  Age: 79 Year
  Sex: Male
  Weight: 62.652 kg

DRUGS (11)
  1. ADUHELM [Suspect]
     Active Substance: ADUCANUMAB-AVWA
     Indication: Product used for unknown indication
     Dosage: INFUSION 1
     Route: 050
     Dates: start: 20220201
  2. ADUHELM [Suspect]
     Active Substance: ADUCANUMAB-AVWA
     Dosage: INFUSION 2
     Route: 050
     Dates: start: 20220303
  3. ADUHELM [Suspect]
     Active Substance: ADUCANUMAB-AVWA
     Dosage: INFUSION 3
     Route: 050
     Dates: start: 20220407
  4. ADUHELM [Suspect]
     Active Substance: ADUCANUMAB-AVWA
     Dosage: INFUSION 4
     Route: 050
     Dates: start: 20220506
  5. ADUHELM [Suspect]
     Active Substance: ADUCANUMAB-AVWA
     Dosage: INFUSION 5
     Route: 050
     Dates: start: 20220602
  6. ADUHELM [Suspect]
     Active Substance: ADUCANUMAB-AVWA
     Dosage: INFUSION 6
     Route: 050
     Dates: start: 20220714
  7. ADUHELM [Suspect]
     Active Substance: ADUCANUMAB-AVWA
     Dosage: INFUSION 7
     Route: 050
     Dates: start: 20220811
  8. ADUHELM [Suspect]
     Active Substance: ADUCANUMAB-AVWA
     Dosage: INFUSION 8
     Route: 050
     Dates: start: 20220908
  9. LOSARTAN [Concomitant]
     Active Substance: LOSARTAN
     Indication: Product used for unknown indication
     Route: 050
     Dates: start: 20210405
  10. ROSUVASTATIN [Concomitant]
     Active Substance: ROSUVASTATIN
     Indication: Product used for unknown indication
     Route: 050
     Dates: start: 20210405
  11. DONEPEZIL [Concomitant]
     Active Substance: DONEPEZIL
     Indication: Product used for unknown indication
     Route: 050
     Dates: start: 20180108

REACTIONS (1)
  - Brain stem stroke [Recovered/Resolved]

NARRATIVE: CASE EVENT DATE: 20220601
